FAERS Safety Report 17571285 (Version 1)
Quarter: 2020Q1

REPORT INFORMATION
  Report Type: Spontaneous
  Country: FR (occurrence: FR)
  Receive Date: 20200323
  Receipt Date: 20200323
  Transmission Date: 20200409
  Serious: Yes (Hospitalization)
  Sender: FDA-Public Use
  Company Number: FR-PFIZER INC-2020119882

PATIENT
  Age: 89 Year
  Sex: Female
  Weight: 89 kg

DRUGS (5)
  1. PRADAXA [Concomitant]
     Active Substance: DABIGATRAN ETEXILATE MESYLATE
     Dosage: 220 MG, 1X/DAY
     Route: 048
  2. ATENOLOL ARROW [Concomitant]
     Active Substance: ATENOLOL
     Dosage: 50 MG, 1X/DAY
     Route: 048
  3. LYRICA [Suspect]
     Active Substance: PREGABALIN
     Indication: PAIN
     Dosage: 600 MG, 1X/DAY
     Route: 048
     Dates: start: 20190829
  4. SERESTA [Suspect]
     Active Substance: OXAZEPAM
     Indication: AGGRESSION
     Dosage: 20 MG, 1X/DAY
     Route: 048
     Dates: start: 2017
  5. RISPERDAL [Suspect]
     Active Substance: RISPERIDONE
     Indication: AGGRESSION
     Dosage: 2 MG, 1X/DAY
     Route: 048
     Dates: start: 2017

REACTIONS (2)
  - Somnolence [Recovered/Resolved]
  - Bladder dilatation [Recovered/Resolved]

NARRATIVE: CASE EVENT DATE: 20200118
